FAERS Safety Report 4892956-8 (Version None)
Quarter: 2006Q1

REPORT INFORMATION
  Report Type: 
  Country: None (occurrence: None)
  Receive Date: 20060126
  Receipt Date: 20051220
  Transmission Date: 20060701
  Serious: Yes (Hospitalization)
  Sender: FDA-Public Use
  Company Number: JP-MERCK-0512USA03818

PATIENT
  Age: 75 Year
  Sex: Female

DRUGS (6)
  1. PEPCID RPD [Suspect]
     Indication: GASTRITIS
     Route: 048
     Dates: end: 20051109
  2. LOXONIN [Concomitant]
     Route: 048
  3. MYONAL [Concomitant]
     Route: 048
  4. PROTOPORPHYRIN DISODIUM [Concomitant]
     Route: 048
  5. NAUZELIN [Concomitant]
     Route: 048
  6. ADENOSINE TRIPHOSPHATE DISODIUM [Concomitant]
     Route: 048

REACTIONS (2)
  - OSTEOARTHRITIS [None]
  - PLATELET COUNT DECREASED [None]
